FAERS Safety Report 5018209-5 (Version None)
Quarter: 2006Q2

REPORT INFORMATION
  Report Type: 
  Country: None (occurrence: None)
  Receive Date: 20060530
  Receipt Date: 20060516
  Transmission Date: 20061013
  Serious: Yes (Other)
  Sender: FDA-Public Use
  Company Number: 2005130722

PATIENT
  Age: 44 Year
  Sex: Male
  Weight: 117.9352 kg

DRUGS (3)
  1. CELEBREX [Suspect]
     Indication: BACK PAIN
     Dosage: 200 MG (200 MG, 1 IN 1 D), ORAL
     Route: 048
     Dates: start: 19990101, end: 20050109
  2. TRAMADOL HCL [Concomitant]
  3. MELOXICAM (MELOXICAM) [Concomitant]

REACTIONS (4)
  - CARDIAC ARREST [None]
  - EJECTION FRACTION DECREASED [None]
  - MYOCARDIAL INFARCTION [None]
  - SUBCLAVIAN ARTERY STENOSIS [None]
